FAERS Safety Report 12773059 (Version 1)
Quarter: 2016Q3

REPORT INFORMATION
  Report Type: Spontaneous
  Country: US (occurrence: US)
  Receive Date: 20160922
  Receipt Date: 20160922
  Transmission Date: 20161109
  Serious: No
  Sender: FDA-Public Use
  Company Number: US-BION-20160073

PATIENT
  Age: 78 Year
  Sex: Male
  Weight: 68.04 kg

DRUGS (3)
  1. ZYRTEC [Suspect]
     Active Substance: CETIRIZINE HYDROCHLORIDE
     Route: 048
  2. XANAX [Concomitant]
     Active Substance: ALPRAZOLAM
     Indication: ANXIETY
  3. TEMAZEPAM. [Concomitant]
     Active Substance: TEMAZEPAM
     Indication: INSOMNIA

REACTIONS (5)
  - Product expiration date issue [None]
  - Physical product label issue [Not Recovered/Not Resolved]
  - Fatigue [Recovered/Resolved]
  - Somnolence [Unknown]
  - Product lot number issue [None]

NARRATIVE: CASE EVENT DATE: 20160421
